FAERS Safety Report 6595684-6 (Version None)
Quarter: 2010Q1

REPORT INFORMATION
  Report Type: 
  Country: None (occurrence: None)
  Receive Date: 20100222
  Receipt Date: 20100222
  Transmission Date: 20100710
  Serious: Yes (Disabling)
  Sender: FDA-Public Use
  Company Number: None

PATIENT
  Age: 73 Year
  Sex: Female
  Weight: 90.7194 kg

DRUGS (3)
  1. LEVAQUIN [Suspect]
     Indication: CYSTITIS
     Dosage: 500 MG. 1X DAY
     Dates: start: 20091102
  2. LEVAQUIN [Suspect]
     Indication: CYSTITIS
     Dosage: 500 MG. 1X DAY
     Dates: start: 20091103
  3. LEVAQUIN [Suspect]
     Indication: CYSTITIS
     Dosage: 500 MG. 1X DAY
     Dates: start: 20091104

REACTIONS (1)
  - TENDONITIS [None]
